FAERS Safety Report 6067655-X (Version None)
Quarter: 2009Q1

REPORT INFORMATION
  Report Type: 
  Country: None (occurrence: None)
  Receive Date: 20090205
  Receipt Date: 20090202
  Transmission Date: 20090719
  Serious: Yes (Other)
  Sender: FDA-Public Use
  Company Number: DE-ROXANE LABORATORIES, INC.-2009-RO-00103RO

PATIENT
  Age: 13 Year
  Sex: Male

DRUGS (4)
  1. METHOTREXATE [Suspect]
     Indication: ACUTE LYMPHOCYTIC LEUKAEMIA
     Route: 037
  2. METHOTREXATE [Suspect]
  3. METHOTREXATE [Suspect]
     Route: 037
  4. CALCIUM FOLINATE [Suspect]
     Route: 042

REACTIONS (2)
  - DEMYELINATION [None]
  - NEUROTOXICITY [None]
